FAERS Safety Report 7020254-5 (Version None)
Quarter: 2010Q3

REPORT INFORMATION
  Report Type: 
  Country: None (occurrence: None)
  Receive Date: 20100927
  Receipt Date: 20100927
  Transmission Date: 20110219
  Serious: Yes (Other)
  Sender: FDA-Public Use
  Company Number: OL-10-01

PATIENT
  Age: 66 Year
  Sex: Female

DRUGS (1)
  1. VITAMIN D [Suspect]
     Indication: VITAMIN D DECREASED
     Dosage: REFER INSERT, ROUTE ORAL
     Route: 048

REACTIONS (10)
  - BACK PAIN [None]
  - BONE PAIN [None]
  - CARDIOMEGALY [None]
  - DYSSTASIA [None]
  - FATIGUE [None]
  - GAIT DISTURBANCE [None]
  - GASTROINTESTINAL DISORDER [None]
  - PRURITUS [None]
  - PULMONARY OEDEMA [None]
  - RASH [None]
